FAERS Safety Report 4280257-0 (Version None)
Quarter: 2004Q1

REPORT INFORMATION
  Report Type: 
  Country: None (occurrence: None)
  Receive Date: 20040126
  Receipt Date: 20040114
  Transmission Date: 20041129
  Serious: Yes (Death, Hospitalization, Other)
  Sender: FDA-Public Use
  Company Number: US-SHR-04-019786

PATIENT
  Age: 49 Year
  Sex: Male

DRUGS (3)
  1. BETASERON [Suspect]
     Indication: MULTIPLE SCLEROSIS
     Dosage: 8 MIU, EVERY 2D, SUBCUTANEOUS
     Route: 058
     Dates: start: 20010401, end: 20031223
  2. CELEXA [Concomitant]
  3. BACLOFEN [Concomitant]

REACTIONS (7)
  - ABASIA [None]
  - AGE INDETERMINATE MYOCARDIAL INFARCTION [None]
  - ANAEMIA [None]
  - ELECTROCARDIOGRAM ABNORMAL [None]
  - OEDEMA PERIPHERAL [None]
  - PNEUMONIA BACTERIAL [None]
  - SEPTIC SHOCK [None]
